FAERS Safety Report 18522582 (Version 1)
Quarter: 2020Q4

REPORT INFORMATION
  Report Type: Report from Study
  Country: JP (occurrence: JP)
  Receive Date: 20201119
  Receipt Date: 20201119
  Transmission Date: 20210114
  Serious: Yes (Hospitalization, Other)
  Sender: FDA-Public Use
  Company Number: JP-ELI_LILLY_AND_COMPANY-21498555

PATIENT
  Age: 61 Year
  Sex: Male

DRUGS (5)
  1. CETUXIMAB. [Suspect]
     Active Substance: CETUXIMAB
     Indication: SQUAMOUS CELL CARCINOMA OF HEAD AND NECK
     Dosage: 570 MG, DAILY
     Route: 041
     Dates: start: 20140423, end: 20140423
  2. CETUXIMAB. [Suspect]
     Active Substance: CETUXIMAB
     Dosage: 350 MG, WEEKLY (1/W)
     Route: 041
     Dates: start: 20140611, end: 20140702
  3. CETUXIMAB. [Suspect]
     Active Substance: CETUXIMAB
     Dosage: 360 MG, WEEKLY (1/W)
     Route: 041
     Dates: start: 20140521, end: 20140521
  4. CETUXIMAB. [Suspect]
     Active Substance: CETUXIMAB
     Dosage: 350 MG, WEEKLY (1/W)
     Route: 041
     Dates: start: 20140528, end: 20140528
  5. CETUXIMAB. [Suspect]
     Active Substance: CETUXIMAB
     Dosage: 355 MG, WEEKLY (1/W)
     Route: 041
     Dates: start: 20140604, end: 20140604

REACTIONS (13)
  - Stomatitis [Recovered/Resolved]
  - Hypocalcaemia [Recovered/Resolved]
  - Hypomagnesaemia [Recovering/Resolving]
  - Radiation skin injury [Recovered/Resolved]
  - Hyperkalaemia [Recovered/Resolved]
  - White blood cell count decreased [Not Recovered/Not Resolved]
  - Dry mouth [Recovered/Resolved]
  - Pharyngeal inflammation [Recovered/Resolved]
  - Dermatitis [Unknown]
  - Anaemia [Recovering/Resolving]
  - Dysphagia [Recovered/Resolved]
  - Dry skin [Recovered/Resolved]
  - Dermatitis acneiform [Recovering/Resolving]

NARRATIVE: CASE EVENT DATE: 20140604
